FAERS Safety Report 4345433-7 (Version None)
Quarter: 2004Q2

REPORT INFORMATION
  Report Type: 
  Country: None (occurrence: None)
  Receive Date: 20040421
  Receipt Date: 20040412
  Transmission Date: 20050107
  Serious: Yes (Hospitalization)
  Sender: FDA-Public Use
  Company Number: 2004208897FR

PATIENT
  Age: 13 Month
  Sex: Female

DRUGS (4)
  1. VANTIN [Suspect]
     Indication: ASTHENIA
     Dosage: 70 MG, DAILY, ORAL
     Route: 048
     Dates: start: 20040305, end: 20040306
  2. ASPEGIC 1000 [Suspect]
     Indication: ASTHENIA
     Dosage: UNK, ORAL
     Route: 048
     Dates: start: 20040305, end: 20040306
  3. PRIMPERAN TAB [Suspect]
     Indication: ASTHENIA
     Dosage: UNK, ORAL
     Route: 048
     Dates: start: 20040305, end: 20040306
  4. ACETAMINOPHEN [Suspect]
     Indication: ASTHENIA
     Dosage: UNK, ORAL
     Route: 048
     Dates: start: 20040305, end: 20040306

REACTIONS (6)
  - HAEMATURIA [None]
  - NEPHRITIS INTERSTITIAL [None]
  - PYREXIA [None]
  - RENAL FAILURE ACUTE [None]
  - RENAL TUBULAR DISORDER [None]
  - VOMITING [None]
